FAERS Safety Report 12456996 (Version 1)
Quarter: 2016Q2

REPORT INFORMATION
  Report Type: Spontaneous
  Country: US (occurrence: US)
  Receive Date: 20160610
  Receipt Date: 20160610
  Transmission Date: 20160815
  Serious: Yes (Other)
  Sender: FDA-Public Use
  Company Number: US-WATSON-2016-12067

PATIENT
  Age: 86 Year
  Sex: Male

DRUGS (3)
  1. TOBRAMYCIN SULFATE (WATSON LABORATORIES) [Suspect]
     Active Substance: TOBRAMYCIN SULFATE
     Indication: ARTHRITIS INFECTIVE
     Dosage: SPACER PLACEMENT
     Route: 014
  2. VANCOMYCIN HCL (WATSON LABORATORIES) [Suspect]
     Active Substance: VANCOMYCIN
     Indication: ARTHRITIS INFECTIVE
     Dosage: UNKNOWN, SPACER PLACEMENT
     Route: 013
  3. VANCOMYCIN HCL (WATSON LABORATORIES) [Suspect]
     Active Substance: VANCOMYCIN
     Dosage: UNKNOWN, SPACER PLACEMENT
     Route: 042

REACTIONS (1)
  - Linear IgA disease [Recovering/Resolving]
